FAERS Safety Report 6300635-5 (Version None)
Quarter: 2009Q3

REPORT INFORMATION
  Report Type: 
  Country: None (occurrence: None)
  Receive Date: 20090806
  Receipt Date: 20081223
  Transmission Date: 20100115
  Serious: No
  Sender: FDA-Public Use
  Company Number: US-ABBOTT-08P-163-0491056-00

PATIENT
  Sex: Male
  Weight: 106.69 kg

DRUGS (3)
  1. DEPAKOTE ER [Suspect]
     Indication: BIPOLAR DISORDER
     Dosage: 500 MILLIGRAMS DAILY
  2. DEPAKOTE ER [Suspect]
     Dosage: 1000 MILLIGRAMS DAILY
  3. SEROQUEL [Concomitant]
     Indication: DRUG USE FOR UNKNOWN INDICATION

REACTIONS (8)
  - AGGRESSION [None]
  - AGITATION [None]
  - ANGER [None]
  - ANXIETY [None]
  - INSOMNIA [None]
  - IRRITABILITY [None]
  - PANIC REACTION [None]
  - PARANOIA [None]
